FAERS Safety Report 10520043 (Version 2)
Quarter: 2014Q4

REPORT INFORMATION
  Report Type: Report from Study
  Country: US (occurrence: US)
  Receive Date: 20141015
  Receipt Date: 20141117
  Transmission Date: 20150528
  Serious: Yes (Hospitalization, Other)
  Sender: FDA-Public Use
  Company Number: US-BAYER-2014-152154

PATIENT
  Age: 55 Year
  Sex: Male

DRUGS (1)
  1. NEXAVAR [Suspect]
     Active Substance: SORAFENIB
     Indication: RENAL CANCER
     Dosage: 200 MG, BID
     Route: 048
     Dates: start: 20140219

REACTIONS (6)
  - Seizure [None]
  - Rash [Recovered/Resolved]
  - Hypertension [None]
  - Renal cancer [None]
  - Cardiac disorder [None]
  - Abdominal pain upper [None]
